FAERS Safety Report 7200678-3 (Version None)
Quarter: 2010Q4

REPORT INFORMATION
  Report Type: 
  Country: None (occurrence: None)
  Receive Date: 20101215
  Receipt Date: 20101129
  Transmission Date: 20110411
  Serious: Yes (Life-Threatening, Hospitalization, Other)
  Sender: FDA-Public Use
  Company Number: TPA2010A01419

PATIENT
  Age: 48 Year
  Sex: Female
  Weight: 81.6475 kg

DRUGS (27)
  1. ACTOS [Suspect]
     Indication: TYPE 2 DIABETES MELLITUS
     Dosage: 30 MG DAILY, ORAL
     Route: 048
     Dates: start: 20070101, end: 20070101
  2. ALBUTEROL [Concomitant]
  3. ALPRAZOLAM [Concomitant]
  4. CEFEPIME HCL (CEFEPIME HYDROCHLORIDE) [Concomitant]
  5. ENOXAPARIN SODIUM [Concomitant]
  6. CLINDAMYCIN-DEXTROSE (CLINDAMYCIN HYDROCHLORIDE) [Concomitant]
  7. GUAIFENESIN [Concomitant]
  8. ALBUMIN (HUMAN) [Concomitant]
  9. ESOMEPRAZOLE SODIUM (ESOMEPRAZOLE) [Concomitant]
  10. INSULIN HUMAN R (INSULIN HUMAN) [Concomitant]
  11. GLIMEPIRIDE [Concomitant]
  12. FUROSEMIDE [Concomitant]
  13. HYDROCODONE/APAP (PARACETAMOL, HYDROCODONE) [Concomitant]
  14. TORSEMIDE [Concomitant]
  15. HYDROMORPHONE HCL [Concomitant]
  16. LINEZOLID [Concomitant]
  17. METHYLPRED (METHYLPREDNISOLONE) [Concomitant]
  18. METRONIDAZOLE [Concomitant]
  19. PANTOPRAZOLE IV (P;ANTOPRAZOLE) [Concomitant]
  20. POTASSIUM CHLORIDE [Concomitant]
  21. IPRATROPIUM (IPRATROPIUM BROMIDE) [Concomitant]
  22. SODIUM CHLORIDE 0.9% [Concomitant]
  23. POLYSAC IRON - FOLIC ACID - B12 (FOLIC ACID, CYANOCOBALAMIN, POLYSACCH [Concomitant]
  24. PREDNISONE TAB [Concomitant]
  25. LORAZEPAM [Concomitant]
  26. PROPOFOL [Concomitant]
  27. NITROGLYCERIN (ALL OTHER THERAPEUTIC PRODUCTS) [Concomitant]

REACTIONS (15)
  - ACTIVATED PARTIAL THROMBOPLASTIN TIME PROLONGED [None]
  - CANDIDURIA [None]
  - CARDIAC FAILURE CONGESTIVE [None]
  - CULTURE URINE POSITIVE [None]
  - DEEP VEIN THROMBOSIS [None]
  - FIBRIN D DIMER INCREASED [None]
  - FUNGAL INFECTION [None]
  - HAEMOGLOBIN DECREASED [None]
  - INTERNATIONAL NORMALISED RATIO DECREASED [None]
  - LEUKOCYTOSIS [None]
  - MONOCYTE PERCENTAGE INCREASED [None]
  - PROTHROMBIN TIME PROLONGED [None]
  - SPUTUM CULTURE POSITIVE [None]
  - THYROID NEOPLASM [None]
  - UPPER AIRWAY OBSTRUCTION [None]
